FAERS Safety Report 4996144-6 (Version None)
Quarter: 2006Q2

REPORT INFORMATION
  Report Type: 
  Country: None (occurrence: None)
  Receive Date: 20060504
  Receipt Date: 20060418
  Transmission Date: 20061013
  Serious: Yes (Other)
  Sender: FDA-Public Use
  Company Number: 23022M01FRA

PATIENT
  Age: 29 Year
  Sex: Male

DRUGS (4)
  1. REBIF [Suspect]
     Indication: MULTIPLE SCLEROSIS
     Dosage: 44 MCG, 3 IN 1 WEEKS, SUBCUTANEOUS
     Route: 058
     Dates: start: 20010101, end: 20010515
  2. SERTRALINE HYDROCHLORIDE [Concomitant]
  3. CLONAZEPAM [Concomitant]
  4. BACLOFEN [Concomitant]

REACTIONS (1)
  - HODGKIN'S DISEASE [None]
